FAERS Safety Report 4924970-8 (Version None)
Quarter: 2006Q1

REPORT INFORMATION
  Report Type: 
  Country: None (occurrence: None)
  Receive Date: 20060222
  Receipt Date: 20060209
  Transmission Date: 20060701
  Serious: Yes (Life-Threatening, Hospitalization)
  Sender: FDA-Public Use
  Company Number: 2006-02-0341

PATIENT
  Age: 30 Year
  Sex: Female

DRUGS (5)
  1. PEG-INTRON (PEGINTERFERON ALFA-2B) INJECTABLE [Suspect]
     Indication: CHRONIC HEPATITIS
     Dosage: SUBCUTANEOUS
     Route: 058
     Dates: start: 20030601, end: 20040513
  2. RIBAVIRIN [Suspect]
     Indication: CHRONIC HEPATITIS
     Dosage: ORAL
     Route: 048
     Dates: start: 20030601, end: 20040513
  3. MYCOPHENOLATE MOFETIL [Concomitant]
  4. CYCLOSPORINE [Concomitant]
  5. AMLODIPINE [Concomitant]

REACTIONS (6)
  - ALANINE AMINOTRANSFERASE INCREASED [None]
  - ASPARTATE AMINOTRANSFERASE INCREASED [None]
  - BLOOD ALKALINE PHOSPHATASE INCREASED [None]
  - BLOOD BILIRUBIN INCREASED [None]
  - GAMMA-GLUTAMYLTRANSFERASE INCREASED [None]
  - LIVER TRANSPLANT REJECTION [None]
